FAERS Safety Report 13714060 (Version 10)
Quarter: 2018Q3

REPORT INFORMATION
  Report Type: Report from Study
  Country: US (occurrence: US)
  Receive Date: 20170704
  Receipt Date: 20180810
  Transmission Date: 20181010
  Serious: Yes (Hospitalization)
  Sender: FDA-Public Use
  Company Number: US-ACTELION-A-US2017-156125

PATIENT
  Age: 88 Year
  Sex: Female

DRUGS (8)
  1. METOPROLOL. [Concomitant]
     Active Substance: METOPROLOL
     Dosage: UNK
     Dates: start: 20150618
  2. LEVOTHYROXINE. [Concomitant]
     Active Substance: LEVOTHYROXINE
     Dosage: 100 MCG, UNK
     Dates: start: 20150618
  3. OPSUMIT [Suspect]
     Active Substance: MACITENTAN
     Indication: PULMONARY ARTERIAL HYPERTENSION
     Dosage: 10 MG, QD
     Route: 048
     Dates: start: 20150622
  4. SILDENAFIL. [Concomitant]
     Active Substance: SILDENAFIL
     Dosage: UNK
     Dates: start: 20170519
  5. RANITIDINE. [Concomitant]
     Active Substance: RANITIDINE
  6. OPSUMIT [Suspect]
     Active Substance: MACITENTAN
     Dosage: 10 MG, QD
     Route: 048
  7. ZANTAC [Concomitant]
     Active Substance: RANITIDINE HYDROCHLORIDE
     Dosage: UNK
     Dates: start: 20150618
  8. ASPIRIN. [Concomitant]
     Active Substance: ASPIRIN
     Dosage: 81 MG, UNK
     Dates: start: 20150618

REACTIONS (16)
  - Respiratory syncytial virus test positive [Not Recovered/Not Resolved]
  - Dyspnoea [Not Recovered/Not Resolved]
  - Neck pain [Not Recovered/Not Resolved]
  - Circulatory collapse [Unknown]
  - Nasopharyngitis [Unknown]
  - Condition aggravated [Not Recovered/Not Resolved]
  - Therapy non-responder [Unknown]
  - Musculoskeletal pain [Not Recovered/Not Resolved]
  - Therapeutic response decreased [Unknown]
  - Pneumonia [Not Recovered/Not Resolved]
  - Peripheral swelling [Unknown]
  - Drug dose omission [Unknown]
  - Pulmonary arterial hypertension [Not Recovered/Not Resolved]
  - Arthritis [Not Recovered/Not Resolved]
  - Headache [Not Recovered/Not Resolved]
  - Oxygen consumption increased [Unknown]

NARRATIVE: CASE EVENT DATE: 201702
